FAERS Safety Report 9872148 (Version 2)
Quarter: 2014Q1

REPORT INFORMATION
  Report Type: Spontaneous
  Country: None (occurrence: US)
  Receive Date: 20140205
  Receipt Date: 20140205
  Transmission Date: 20141002
  Serious: No
  Sender: FDA-Public Use
  Company Number: US-ALLERGAN-1306727US

PATIENT
  Age: 50 Year
  Sex: Female

DRUGS (10)
  1. BOTOX COSMETIC [Suspect]
     Indication: SKIN WRINKLING
     Dosage: UNK UNK, SINGLE
     Route: 030
     Dates: start: 20130410, end: 20130410
  2. BOTOX COSMETIC [Suspect]
     Indication: SKIN WRINKLING
     Dosage: UNK, SINGLE
     Route: 030
     Dates: start: 20130327, end: 20130327
  3. BOTOX COSMETIC [Suspect]
     Indication: SKIN WRINKLING
  4. RADIESSE [Suspect]
     Indication: PRODUCT USED FOR UNKNOWN INDICATION
     Dosage: UNK
     Dates: start: 20130327, end: 20130327
  5. ANTIHISTAMINE NOS [Concomitant]
     Indication: PRODUCT USED FOR UNKNOWN INDICATION
  6. IBUPROFEN [Concomitant]
     Indication: PRODUCT USED FOR UNKNOWN INDICATION
  7. VITAMINS NOS [Concomitant]
     Indication: PRODUCT USED FOR UNKNOWN INDICATION
  8. BLOOD PRESSURE MEDICATION NOS [Concomitant]
     Indication: PRODUCT USED FOR UNKNOWN INDICATION
  9. ESTROGEN [Concomitant]
     Indication: PRODUCT USED FOR UNKNOWN INDICATION
  10. PROGESTERONE [Concomitant]
     Indication: PRODUCT USED FOR UNKNOWN INDICATION

REACTIONS (20)
  - Immunoglobulins increased [Recovering/Resolving]
  - Hypotension [Recovering/Resolving]
  - Dyspnoea exertional [Recovering/Resolving]
  - Cardiovascular disorder [Recovering/Resolving]
  - Eye pain [Recovered/Resolved]
  - Musculoskeletal disorder [Recovering/Resolving]
  - Arthralgia [Recovering/Resolving]
  - Wheezing [Recovering/Resolving]
  - Dizziness [Recovered/Resolved]
  - Off label use [Unknown]
  - Eyelid oedema [Recovering/Resolving]
  - Paraesthesia [Recovering/Resolving]
  - Paraesthesia [Recovering/Resolving]
  - Dyspnoea [Recovering/Resolving]
  - Swelling face [Recovering/Resolving]
  - Headache [Recovered/Resolved]
  - Eyelid ptosis [Recovering/Resolving]
  - Vision blurred [Recovering/Resolving]
  - Nausea [Recovered/Resolved]
  - Dry mouth [Recovering/Resolving]
